FAERS Safety Report 5526307-2 (Version None)
Quarter: 2007Q4

REPORT INFORMATION
  Report Type: 
  Country: None (occurrence: None)
  Receive Date: 20071121
  Receipt Date: 20071121
  Transmission Date: 20080405
  Serious: Yes (Other)
  Sender: FDA-Public Use
  Company Number: None

PATIENT
  Age: 31 Year
  Sex: Female

DRUGS (1)
  1. TOPAMAX [Suspect]
     Dosage: 25 MG QD
     Dates: start: 20070916, end: 20070920

REACTIONS (7)
  - BLINDNESS [None]
  - CONJUNCTIVAL HYPERAEMIA [None]
  - CONJUNCTIVAL OEDEMA [None]
  - DIABETES MELLITUS [None]
  - DIZZINESS [None]
  - ERYTHEMA OF EYELID [None]
  - INTRAOCULAR PRESSURE INCREASED [None]
